FAERS Safety Report 8167635-4 (Version None)
Quarter: 2012Q1

REPORT INFORMATION
  Report Type: 
  Country: None (occurrence: None)
  Receive Date: 20120103
  Receipt Date: 20111110
  Transmission Date: 20120608
  Serious: No
  Sender: FDA-Public Use
  Company Number: AE-2011-002145

PATIENT
  Age: 48 Year
  Sex: Male

DRUGS (6)
  1. FLOMAX [Concomitant]
  2. CLONAZEPAM [Concomitant]
  3. PEGASYS [Concomitant]
  4. SEROQUEL [Concomitant]
  5. INCIVEK [Suspect]
     Dosage: 2250 MG (750 MG,3 IN 1 D),ORAL
     Route: 048
     Dates: start: 20110917, end: 20111007
  6. RIBAVIRIN [Concomitant]

REACTIONS (1)
  - BLOOD URINE PRESENT [None]
